FAERS Safety Report 14903512 (Version 1)
Quarter: 2018Q2

REPORT INFORMATION
  Report Type: Spontaneous
  Country: CN (occurrence: CN)
  Receive Date: 20180516
  Receipt Date: 20180516
  Transmission Date: 20180711
  Serious: Yes (Hospitalization)
  Sender: FDA-Public Use
  Company Number: PHHY2018CN006802

PATIENT
  Age: 53 Year
  Sex: Male

DRUGS (3)
  1. TROPICAMIDE. [Concomitant]
     Active Substance: TROPICAMIDE
     Indication: MYDRIASIS
     Route: 061
  2. FLUORESCITE [Suspect]
     Active Substance: FLUORESCEIN SODIUM
     Indication: ANGIOGRAM RETINA
     Dosage: UNK
     Route: 040
     Dates: start: 20171123
  3. FLUORESCITE [Suspect]
     Active Substance: FLUORESCEIN SODIUM
     Dosage: 5 ML, UNK (0.5G)
     Route: 040

REACTIONS (5)
  - Nausea [Unknown]
  - Hepatic function abnormal [Recovering/Resolving]
  - Yellow skin [Unknown]
  - Vomiting [Unknown]
  - Ocular icterus [Unknown]

NARRATIVE: CASE EVENT DATE: 20171123
